FAERS Safety Report 7184515-1 (Version None)
Quarter: 2010Q4

REPORT INFORMATION
  Report Type: 
  Country: None (occurrence: None)
  Receive Date: 20101222
  Receipt Date: 20101214
  Transmission Date: 20110411
  Serious: Yes (Hospitalization, Other)
  Sender: FDA-Public Use
  Company Number: CA-B.I. PHARMACEUTICALS,INC./RIDGEFIELD-2010-BP-08793BP

PATIENT
  Sex: Female
  Weight: 80 kg

DRUGS (7)
  1. DABIGATRAN [Suspect]
     Indication: EMBOLISM VENOUS
     Dosage: 300 MG
     Route: 048
  2. AVAPRO [Concomitant]
     Indication: HYPERTENSION
     Dosage: 150 MG
     Route: 048
     Dates: start: 20091001
  3. AMLODIPINE [Concomitant]
     Indication: HYPERTENSION
     Dosage: 5 MG
     Route: 048
     Dates: start: 20091001
  4. DIMENHYDRINATE [Concomitant]
     Indication: PROPHYLAXIS OF NAUSEA AND VOMITING
     Route: 048
  5. ACETAMINOPHEN [Concomitant]
     Indication: PAIN
     Route: 048
  6. TINZAPARIN [Concomitant]
     Indication: PULMONARY EMBOLISM
     Route: 048
     Dates: start: 20100920
  7. TINZAPARIN [Concomitant]
     Indication: DEEP VEIN THROMBOSIS

REACTIONS (3)
  - OVARIAN CANCER METASTATIC [None]
  - PLEURAL EFFUSION [None]
  - PULMONARY EMBOLISM [None]
